FAERS Safety Report 7055740-5 (Version None)
Quarter: 2010Q4

REPORT INFORMATION
  Report Type: 
  Country: None (occurrence: None)
  Receive Date: 20101021
  Receipt Date: 20101010
  Transmission Date: 20110411
  Serious: Yes (Other)
  Sender: FDA-Public Use
  Company Number: NO-ROCHE-732491

PATIENT
  Sex: Male

DRUGS (3)
  1. XELODA [Suspect]
     Dosage: DOSE REPORTED AS XELIRI
     Route: 065
  2. IRINOTECAN HCL [Interacting]
     Dosage: DOSE REPORTED AS XELIRI
     Route: 065
  3. LAMOTRIGINE [Interacting]
     Indication: EPILEPSY
     Route: 065

REACTIONS (4)
  - DIARRHOEA [None]
  - DRUG INEFFECTIVE [None]
  - DRUG INTERACTION [None]
  - EPILEPSY [None]
